FAERS Safety Report 4916258-6 (Version None)
Quarter: 2006Q1

REPORT INFORMATION
  Report Type: 
  Country: None (occurrence: None)
  Receive Date: 20060217
  Receipt Date: 20060209
  Transmission Date: 20060701
  Serious: Yes (Hospitalization)
  Sender: FDA-Public Use
  Company Number: US-MERCK-0602USA02980

PATIENT
  Age: 51 Year
  Sex: Male
  Weight: 75 kg

DRUGS (4)
  1. VIOXX [Suspect]
     Indication: BACK PAIN
     Route: 048
     Dates: start: 20010626, end: 20010815
  2. LOTENSIN [Concomitant]
     Indication: HYPERTENSION
     Route: 065
     Dates: start: 19940101, end: 20051011
  3. ASPIRIN [Concomitant]
     Route: 065
  4. TYLENOL [Concomitant]
     Route: 065

REACTIONS (4)
  - ANXIETY [None]
  - COUGH [None]
  - DEPRESSION [None]
  - MYOCARDIAL INFARCTION [None]
